FAERS Safety Report 12159210 (Version 1)
Quarter: 2016Q1

REPORT INFORMATION
  Report Type: Spontaneous
  Country: FR (occurrence: FR)
  Receive Date: 20160308
  Receipt Date: 20160308
  Transmission Date: 20160526
  Serious: Yes (Hospitalization)
  Sender: FDA-Public Use
  Company Number: FR-BAYER-2016-038733

PATIENT
  Age: 88 Year
  Sex: Female

DRUGS (2)
  1. FLAGYL [Suspect]
     Active Substance: METRONIDAZOLE\METRONIDAZOLE HYDROCHLORIDE
     Indication: DIVERTICULUM INTESTINAL
     Dosage: 500 MG, TID
     Dates: start: 20160208, end: 20160213
  2. CIFLOX [Suspect]
     Active Substance: CIPROFLOXACIN
     Indication: DIVERTICULUM INTESTINAL
     Dosage: 500 MG, BID
     Route: 048
     Dates: start: 20160208, end: 20160213

REACTIONS (3)
  - Acute respiratory failure [Not Recovered/Not Resolved]
  - Respiratory acidosis [Not Recovered/Not Resolved]
  - Tremor [Recovered/Resolved]

NARRATIVE: CASE EVENT DATE: 20160208
